FAERS Safety Report 6614209-X (Version None)
Quarter: 2010Q1

REPORT INFORMATION
  Report Type: 
  Country: None (occurrence: None)
  Receive Date: 20100304
  Receipt Date: 20100222
  Transmission Date: 20100710
  Serious: Yes (Hospitalization)
  Sender: FDA-Public Use
  Company Number: SG-PFIZER INC-2009300438

PATIENT
  Age: 61 Year
  Sex: Female
  Weight: 50.6 kg

DRUGS (4)
  1. SUNITINIB MALATE [Suspect]
     Indication: HEPATIC NEOPLASM MALIGNANT
     Dosage: 25 MG, 1X/DAY
     Route: 048
     Dates: start: 20090704, end: 20091113
  2. ATENOLOL [Suspect]
     Indication: HYPERTENSION
     Dosage: 50 MG, 1X/DAY
     Route: 048
     Dates: start: 19990101
  3. LAMIVUDINE [Concomitant]
     Indication: HEPATITIS B
     Dosage: 100 MG, 1X/DAY
     Dates: start: 20090704
  4. PROCODIN [Concomitant]
     Indication: COUGH
     Dosage: 10 ML, 3X/DAY AS NEEDED
     Dates: start: 20090703

REACTIONS (4)
  - CATARACT [None]
  - HEPATIC NEOPLASM MALIGNANT [None]
  - HEPATITIS B [None]
  - SUPRAVENTRICULAR EXTRASYSTOLES [None]
